FAERS Safety Report 7763176-4 (Version None)
Quarter: 2011Q3

REPORT INFORMATION
  Report Type: 
  Country: None (occurrence: None)
  Receive Date: 20110920
  Receipt Date: 20110913
  Transmission Date: 20111222
  Serious: Yes (Other)
  Sender: FDA-Public Use
  Company Number: PHHY2011JP67334

PATIENT
  Age: 68 Year
  Sex: Male
  Weight: 49 kg

DRUGS (6)
  1. HORMONES [Concomitant]
  2. RED BLOOD CELLS, CONCENTRATED [Concomitant]
  3. ZOLEDRONIC [Suspect]
     Indication: PROSTATE CANCER
     Route: 041
     Dates: start: 20090201
  4. BICALUTAMIDE [Concomitant]
  5. ZOLEDRONIC [Suspect]
     Indication: METASTASES TO BONE
  6. LEUPROLIDE ACETATE [Concomitant]

REACTIONS (16)
  - PLATELET COUNT DECREASED [None]
  - ASPARTATE AMINOTRANSFERASE INCREASED [None]
  - NAUSEA [None]
  - THROMBOCYTOPENIA [None]
  - DECREASED APPETITE [None]
  - FATIGUE [None]
  - NEOPLASM PROGRESSION [None]
  - NEOPLASM MALIGNANT [None]
  - PANCYTOPENIA [None]
  - BACK PAIN [None]
  - ANTI-ANDROGEN WITHDRAWAL SYNDROME [None]
  - WHITE BLOOD CELL COUNT DECREASED [None]
  - ANAEMIA [None]
  - BLOOD ALKALINE PHOSPHATASE INCREASED [None]
  - HAEMOGLOBIN DECREASED [None]
  - MUSCULOSKELETAL PAIN [None]
